FAERS Safety Report 21361003 (Version 1)
Quarter: 2022Q3

REPORT INFORMATION
  Report Type: Other
  Country: US (occurrence: None)
  Receive Date: 20220921
  Receipt Date: 20220921
  Transmission Date: 20221027
  Serious: Yes (Hospitalization)
  Sender: FDA-Public Use
  Company Number: US-ROCHE-3055443

PATIENT
  Age: 71 Year
  Sex: Male
  Weight: 83.536 kg

DRUGS (7)
  1. ACTEMRA [Suspect]
     Active Substance: TOCILIZUMAB
     Indication: Rheumatoid arthritis
     Dosage: INJECT 162MG SUBCUTANEOUSLY EVERY OTHER WEEK, REFILLS 1 YEAR
     Route: 058
  2. ACTEMRA [Suspect]
     Active Substance: TOCILIZUMAB
  3. ACTEMRA [Suspect]
     Active Substance: TOCILIZUMAB
  4. ISOSORBIDE [Concomitant]
     Active Substance: ISOSORBIDE
  5. METOPROLOL [Concomitant]
     Active Substance: METOPROLOL
  6. PREDNISONE [Concomitant]
     Active Substance: PREDNISONE
  7. ALEVE [Concomitant]
     Active Substance: NAPROXEN SODIUM
     Indication: Pain

REACTIONS (4)
  - COVID-19 [Recovered/Resolved]
  - Pain [Unknown]
  - Pneumonia [Recovered/Resolved]
  - Product dose omission issue [Unknown]

NARRATIVE: CASE EVENT DATE: 20220712
